FAERS Safety Report 8370912-5 (Version None)
Quarter: 2012Q2

REPORT INFORMATION
  Report Type: 
  Country: None (occurrence: None)
  Receive Date: 20120518
  Receipt Date: 20110822
  Transmission Date: 20120825
  Serious: No
  Sender: FDA-Public Use
  Company Number: US-BAUSCH-2011BL005529

PATIENT
  Age: 80 Year
  Sex: Female

DRUGS (2)
  1. IPRATROPIUM BROMIDE [Suspect]
     Indication: NASAL CONGESTION
     Route: 045
     Dates: start: 20110801, end: 20110801
  2. SALT WATER SPRAY [Concomitant]

REACTIONS (2)
  - NASAL DISCOMFORT [None]
  - EPISTAXIS [None]
